FAERS Safety Report 22647442 (Version 1)
Quarter: 2023Q2

REPORT INFORMATION
  Report Type: Report from Study
  Country: US (occurrence: US)
  Receive Date: 20230628
  Receipt Date: 20230628
  Transmission Date: 20230722
  Serious: Yes (Other)
  Sender: FDA-Public Use
  Company Number: US-ABBVIE-5305536

PATIENT
  Sex: Male

DRUGS (4)
  1. VENCLEXTA [Suspect]
     Active Substance: VENETOCLAX
     Indication: Chronic lymphocytic leukaemia
     Route: 048
     Dates: start: 20190511
  2. GAZYVA [Suspect]
     Active Substance: OBINUTUZUMAB
     Indication: Chronic lymphocytic leukaemia
     Route: 065
     Dates: start: 20190511
  3. IDELALISIB [Concomitant]
     Active Substance: IDELALISIB
     Indication: Product used for unknown indication
     Route: 065
  4. ZANUBRUTINIB [Concomitant]
     Active Substance: ZANUBRUTINIB
     Indication: Product used for unknown indication
     Route: 065

REACTIONS (3)
  - Chronic lymphocytic leukaemia recurrent [Unknown]
  - Drug ineffective [Unknown]
  - Drug ineffective [Unknown]
